FAERS Safety Report 14279618 (Version 2)
Quarter: 2017Q4

REPORT INFORMATION
  Report Type: Report from Study
  Country: DE (occurrence: DE)
  Receive Date: 20171212
  Receipt Date: 20171227
  Transmission Date: 20180321
  Serious: Yes (Hospitalization)
  Sender: FDA-Public Use
  Company Number: DE-TEVA-2017-DE-829757

PATIENT
  Age: 69 Year
  Sex: Male
  Weight: 62 kg

DRUGS (9)
  1. CYTARABINE. [Suspect]
     Active Substance: CYTARABINE
     Dosage: LAST ADMINISTRATION PRIOR TO EVENT ONSET 31-OCT-2015;
     Dates: start: 20150909
  2. TEMSIROLIMUS [Suspect]
     Active Substance: TEMSIROLIMUS
     Dosage: ON DAY 1 AND 8 IN EACH CYCLE, LAST ADMINISTRATION PRIOR TO EVENT ONSET 28-OCT-2015
     Dates: start: 20150916
  3. RITUXIMAB. [Suspect]
     Active Substance: RITUXIMAB
     Dosage: LAST ADMINISTRATION PRIOR TO EVENT ONSET 29-OCT-2015
     Dates: start: 20150917
  4. DEXAMETHASONE. [Suspect]
     Active Substance: DEXAMETHASONE
     Dosage: LAST ADMINISTRATION PRIOR TO EVENT ONSET 02-NOV-2015
     Dates: start: 20150918
  5. EMEND [Concomitant]
     Active Substance: APREPITANT
     Dosage: 125/80/80 MG PER DAY
     Dates: start: 20151028, end: 20151030
  6. PANTOZOL [Concomitant]
     Active Substance: PANTOPRAZOLE SODIUM
     Dates: start: 20150916
  7. CARBOPLATIN. [Suspect]
     Active Substance: CARBOPLATIN
     Dosage: LAST ADMINISTRATION PRIOR TO EVENT ONSET 30-OCT-2015;
     Dates: start: 20150918
  8. CISPLATIN. [Suspect]
     Active Substance: CISPLATIN
     Dosage: LAST ADMINISTRATION PRIOR TO EVENT ONSET 30-OCT-2015;
     Dates: start: 20150918
  9. GRANISETRON [Concomitant]
     Active Substance: GRANISETRON
     Dates: start: 20151028

REACTIONS (1)
  - Decreased appetite [Recovered/Resolved]

NARRATIVE: CASE EVENT DATE: 20151102
